FAERS Safety Report 6087329-9 (Version None)
Quarter: 2009Q1

REPORT INFORMATION
  Report Type: 
  Country: None (occurrence: None)
  Receive Date: 20090223
  Receipt Date: 20090213
  Transmission Date: 20090719
  Serious: Yes (Hospitalization)
  Sender: FDA-Public Use
  Company Number: B0534008A

PATIENT
  Age: 21 Year
  Sex: Female
  Weight: 51 kg

DRUGS (6)
  1. MALARONE [Suspect]
     Indication: MALARIA PROPHYLAXIS
     Route: 048
     Dates: start: 20080615, end: 20080701
  2. ARIPIPRAZOLE [Concomitant]
     Dosage: 30MG PER DAY
  3. LAMOTRIGINE [Concomitant]
     Dosage: 75MG PER DAY
  4. CLONAZEPAM [Concomitant]
     Dosage: 1MG PER DAY
  5. ASPIRIN [Concomitant]
     Dosage: 75MG PER DAY
  6. MARIJUANA [Concomitant]

REACTIONS (20)
  - ABNORMAL BEHAVIOUR [None]
  - ANXIETY [None]
  - ASTHENIA [None]
  - DELUSION OF REFERENCE [None]
  - DEPRESSED MOOD [None]
  - DISTURBANCE IN ATTENTION [None]
  - ELECTROCARDIOGRAM ABNORMAL [None]
  - EOSINOPHIL COUNT DECREASED [None]
  - FLAT AFFECT [None]
  - FLIGHT OF IDEAS [None]
  - HALLUCINATION, AUDITORY [None]
  - INSOMNIA [None]
  - LACUNAR INFARCTION [None]
  - PARANOIA [None]
  - PERSECUTORY DELUSION [None]
  - PSYCHOTIC DISORDER [None]
  - SKIN LESION [None]
  - SLEEP DISORDER [None]
  - TEARFULNESS [None]
  - TREMOR [None]
